FAERS Safety Report 6610652-3 (Version None)
Quarter: 2010Q1

REPORT INFORMATION
  Report Type: 
  Country: None (occurrence: None)
  Receive Date: 20100302
  Receipt Date: 20100223
  Transmission Date: 20100710
  Serious: Yes (Hospitalization)
  Sender: FDA-Public Use
  Company Number: A0845995A

PATIENT
  Sex: Male
  Weight: 135.9 kg

DRUGS (2)
  1. AVANDIA [Suspect]
     Route: 048
  2. AVANDAMET [Suspect]
     Route: 048

REACTIONS (4)
  - CARDIAC DISORDER [None]
  - CHEST PAIN [None]
  - MYOCARDIAL INFARCTION [None]
  - RENAL FAILURE [None]
